FAERS Safety Report 6793867-3 (Version None)
Quarter: 2010Q2

REPORT INFORMATION
  Report Type: 
  Country: None (occurrence: None)
  Receive Date: 20100624
  Receipt Date: 20090504
  Transmission Date: 20101027
  Serious: No
  Sender: FDA-Public Use
  Company Number: US-PFIZER INC-2008097484

PATIENT
  Sex: Female
  Weight: 64.545 kg

DRUGS (3)
  1. XALATAN [Suspect]
     Indication: GLAUCOMA
     Dosage: 1 GTT, 1X/DAY
  2. CRESTOR [Concomitant]
     Dosage: UNK
  3. AGGRENOX [Concomitant]
     Dosage: UNK

REACTIONS (1)
  - FOREIGN BODY SENSATION IN EYES [None]
